FAERS Safety Report 8789567 (Version 1)
Quarter: 2012Q4

REPORT INFORMATION
  Report Type: Spontaneous
  Country: US (occurrence: None)
  Receive Date: 20120910
  Receipt Date: 20120910
  Transmission Date: 20130627
  Serious: Yes (Other)
  Sender: FDA-Public Use
  Company Number: None

PATIENT
  Sex: Female
  Weight: 55.34 kg

DRUGS (4)
  1. PREGABALIN [Suspect]
     Dosage: 50 mg qhs po
     Route: 048
     Dates: start: 20120711, end: 20120724
  2. EFFEXOR [Concomitant]
  3. FLUOXETINE [Concomitant]
  4. CLONAZEPAM [Concomitant]

REACTIONS (1)
  - Tinnitus [None]
